FAERS Safety Report 10051465 (Version 2)
Quarter: 2014Q4

REPORT INFORMATION
  Report Type: Spontaneous
  Country: US (occurrence: None)
  Receive Date: 20140328
  Receipt Date: 20141117
  Transmission Date: 20150528
  Serious: Yes (Hospitalization)
  Sender: FDA-Public Use
  Company Number: JPI-P-032384

PATIENT
  Age: 42 Year
  Sex: Female
  Weight: 68.2 kg

DRUGS (3)
  1. XYREM [Suspect]
     Active Substance: SODIUM OXYBATE
     Indication: NARCOLEPSY
     Route: 048
     Dates: start: 200504, end: 2005
  2. LYRICA [Suspect]
     Active Substance: PREGABALIN
     Indication: AUTONOMIC NERVOUS SYSTEM IMBALANCE
     Dates: start: 20130508
  3. TOPAMAX [Suspect]
     Active Substance: TOPIRAMATE
     Indication: PRODUCT USED FOR UNKNOWN INDICATION
     Dosage: UNKNOWN, SINGLE, UNKNOWN
     Dates: start: 201303, end: 201304

REACTIONS (27)
  - Autonomic nervous system imbalance [None]
  - Confusional state [None]
  - Chest pain [None]
  - Headache [None]
  - Balance disorder [None]
  - Ataxia [None]
  - Hypoaesthesia [None]
  - Fibromyalgia [None]
  - Somnolence [None]
  - Insomnia [None]
  - Neck pain [None]
  - Urinary incontinence [None]
  - Myalgia [None]
  - Musculoskeletal disorder [None]
  - Transient ischaemic attack [None]
  - Memory impairment [None]
  - Gait disturbance [None]
  - Condition aggravated [None]
  - Faecal incontinence [None]
  - Orthostatic hypotension [None]
  - Nausea [None]
  - Limb discomfort [None]
  - Speech disorder [None]
  - Dysgraphia [None]
  - Dizziness [None]
  - Muscle spasms [None]
  - Disorientation [None]

NARRATIVE: CASE EVENT DATE: 201212
